FAERS Safety Report 8078049-X (Version None)
Quarter: 2012Q1

REPORT INFORMATION
  Report Type: 
  Country: None (occurrence: None)
  Receive Date: 20120127
  Receipt Date: 20110107
  Transmission Date: 20120608
  Serious: No
  Sender: FDA-Public Use
  Company Number: US-ABBOTT-11P-163-0695894-00

PATIENT
  Sex: Female
  Weight: 63.56 kg

DRUGS (2)
  1. HUMIRA [Suspect]
     Dates: start: 20100501
  2. HUMIRA [Suspect]
     Indication: PSORIASIS
     Dates: start: 20090401, end: 20100501

REACTIONS (1)
  - SINUSITIS [None]
